FAERS Safety Report 7577766-5 (Version None)
Quarter: 2011Q2

REPORT INFORMATION
  Report Type: 
  Country: None (occurrence: None)
  Receive Date: 20110628
  Receipt Date: 20110620
  Transmission Date: 20111010
  Serious: Yes (Hospitalization)
  Sender: FDA-Public Use
  Company Number: US-MUTUAL PHARMACEUTICAL COMPANY, INC.-PNTM20110006

PATIENT
  Age: 32 Year
  Sex: Male
  Weight: 157 kg

DRUGS (11)
  1. DICYCLOMINE [Concomitant]
     Indication: PRODUCT USED FOR UNKNOWN INDICATION
     Route: 048
  2. TESTOSTERONE [Concomitant]
     Indication: PRODUCT USED FOR UNKNOWN INDICATION
     Route: 061
  3. LEVOTHYROXINE SODIUM [Concomitant]
     Indication: PRODUCT USED FOR UNKNOWN INDICATION
     Route: 048
  4. IRBESARTAN-HYDROCHLOROTHIAZIDE 300-25 MG [Concomitant]
     Indication: PRODUCT USED FOR UNKNOWN INDICATION
     Route: 048
  5. PHENTERMINE HYDROCHLORIDE [Suspect]
     Indication: DECREASED APPETITE
     Route: 065
  6. METOPROLOL SUCCINATE EXTENDED RELEASE [Concomitant]
     Indication: PRODUCT USED FOR UNKNOWN INDICATION
     Route: 048
  7. OXYCODONE/ACETAMINOPHEN [Concomitant]
     Indication: PRODUCT USED FOR UNKNOWN INDICATION
     Route: 048
  8. ESOMEPRAZOLE MAGNESIUM [Concomitant]
     Indication: PRODUCT USED FOR UNKNOWN INDICATION
     Route: 048
  9. PROCHLORPERAZINE TAB [Concomitant]
     Indication: PRODUCT USED FOR UNKNOWN INDICATION
  10. OXYCODONE HCL EXTENDED-RELEASE [Concomitant]
     Indication: PRODUCT USED FOR UNKNOWN INDICATION
     Route: 048
  11. METOCLOPRAMIDE [Concomitant]
     Indication: PRODUCT USED FOR UNKNOWN INDICATION
     Route: 048

REACTIONS (3)
  - RHABDOMYOLYSIS [None]
  - RENAL FAILURE ACUTE [None]
  - INAPPROPRIATE SCHEDULE OF DRUG ADMINISTRATION [None]
